FAERS Safety Report 26040521 (Version 1)
Quarter: 2025Q4

REPORT INFORMATION
  Report Type: Spontaneous
  Country: US (occurrence: None)
  Receive Date: 20251112
  Receipt Date: 20251112
  Transmission Date: 20260118
  Serious: Yes (Hospitalization)
  Sender: FDA-CTU
  Company Number: None

PATIENT
  Age: 75 Year
  Sex: Female

DRUGS (1)
  1. EVENITY [Suspect]
     Active Substance: ROMOSOZUMAB-AQQG
     Dosage: FREQUENCY : MONTHLY;?

REACTIONS (7)
  - Headache [None]
  - Therapy cessation [None]
  - Fatigue [None]
  - Hallucination [None]
  - Disorientation [None]
  - Loss of consciousness [None]
  - Seizure [None]
